FAERS Safety Report 9981439 (Version 2)
Quarter: 2014Q2

REPORT INFORMATION
  Report Type: Spontaneous
  Country: GB (occurrence: GB)
  Receive Date: 20140307
  Receipt Date: 20140501
  Transmission Date: 20141212
  Serious: Yes (Life-Threatening, Hospitalization)
  Sender: FDA-Public Use
  Company Number: GB-TEVA-466537ISR

PATIENT
  Age: 1 Hour
  Sex: Female

DRUGS (1)
  1. CITALOPRAM [Suspect]
     Indication: DEPRESSION
     Dosage: 40 - 60 MG
     Route: 064
     Dates: start: 200201, end: 20060613

REACTIONS (8)
  - Laryngeal stenosis [Not Recovered/Not Resolved]
  - Foetal exposure during pregnancy [Unknown]
  - Respiratory disorder [Unknown]
  - Croup infectious [Unknown]
  - Stridor [Unknown]
  - Cardiomegaly [Unknown]
  - Wheezing [Unknown]
  - Pneumonia [Unknown]
